FAERS Safety Report 8348731 (Version 3)
Quarter: 2013Q3

REPORT INFORMATION
  Report Type: Spontaneous
  Country: US (occurrence: US)
  Receive Date: 20120123
  Receipt Date: 20130809
  Transmission Date: 20140515
  Serious: Yes (Other)
  Sender: FDA-Public Use
  Company Number: US-ROCHE-793768

PATIENT
  Age: 16 Year
  Sex: Male
  Weight: 68.1 kg

DRUGS (4)
  1. ACCUTANE [Suspect]
     Indication: ACNE
     Route: 048
     Dates: start: 19920325, end: 19920715
  2. ACCUTANE [Suspect]
     Route: 048
     Dates: start: 19930111, end: 19930512
  3. ACCUTANE [Suspect]
     Route: 048
     Dates: start: 19931116, end: 19960930
  4. CLARITIN-D [Concomitant]

REACTIONS (7)
  - Inflammatory bowel disease [Unknown]
  - Depression [Unknown]
  - Irritable bowel syndrome [Unknown]
  - Oropharyngeal pain [Unknown]
  - Epistaxis [Unknown]
  - Dry skin [Unknown]
  - Chapped lips [Unknown]
